FAERS Safety Report 6999186-4 (Version None)
Quarter: 2010Q3

REPORT INFORMATION
  Report Type: 
  Country: None (occurrence: None)
  Receive Date: 20100920
  Receipt Date: 20091201
  Transmission Date: 20110219
  Serious: No
  Sender: FDA-Public Use
  Company Number: US-ASTRAZENECA-2009SE29781

PATIENT
  Age: 57 Year
  Sex: Female

DRUGS (5)
  1. SEROQUEL [Suspect]
     Indication: INSOMNIA
     Route: 048
     Dates: start: 20090101
  2. FUROSEMIDE [Concomitant]
     Indication: OEDEMA PERIPHERAL
  3. PROZAC [Concomitant]
  4. OXYCONTIN [Concomitant]
  5. OXYCODONE HCL [Concomitant]

REACTIONS (7)
  - ADVERSE EVENT [None]
  - BACK PAIN [None]
  - GAIT DISTURBANCE [None]
  - MENISCUS OPERATION [None]
  - OEDEMA PERIPHERAL [None]
  - PAIN IN EXTREMITY [None]
  - SURGERY [None]
